FAERS Safety Report 7600824-3 (Version None)
Quarter: 2011Q3

REPORT INFORMATION
  Report Type: 
  Country: None (occurrence: None)
  Receive Date: 20110711
  Receipt Date: 20110614
  Transmission Date: 20111222
  Serious: Yes (Death)
  Sender: FDA-Public Use
  Company Number: JP-ACTELION-A-CH2011-50360

PATIENT
  Sex: Male
  Weight: 2 kg

DRUGS (4)
  1. FUROSEMIDE [Concomitant]
  2. OXYGEN [Concomitant]
  3. PHENOBARBITAL TAB [Concomitant]
  4. TRACLEER [Suspect]
     Indication: PULMONARY ARTERIAL HYPERTENSION
     Dosage: 2.5 MG, BID
     Route: 048
     Dates: start: 20090427, end: 20090828

REACTIONS (5)
  - WHITE BLOOD CELL COUNT INCREASED [None]
  - LIVER FUNCTION TEST ABNORMAL [None]
  - ASPARTATE AMINOTRANSFERASE INCREASED [None]
  - CARDIAC FAILURE CONGESTIVE [None]
  - ALANINE AMINOTRANSFERASE INCREASED [None]
